FAERS Safety Report 18973286 (Version 1)
Quarter: 2021Q1

REPORT INFORMATION
  Report Type: Spontaneous
  Country: FR (occurrence: FR)
  Receive Date: 20210305
  Receipt Date: 20210305
  Transmission Date: 20210420
  Serious: Yes (Hospitalization)
  Sender: FDA-Public Use
  Company Number: NVSC2021FR041358

PATIENT
  Age: 52 Year
  Sex: Female

DRUGS (4)
  1. EXEMESTANE. [Suspect]
     Active Substance: EXEMESTANE
     Indication: INVASIVE DUCTAL BREAST CARCINOMA
     Dosage: 25 MG, QD
     Route: 048
     Dates: start: 201802, end: 20200209
  2. AFINITOR [Suspect]
     Active Substance: EVEROLIMUS
     Indication: INVASIVE DUCTAL BREAST CARCINOMA
     Dosage: 1 DF, QD
     Route: 048
     Dates: start: 201802, end: 20200209
  3. EPIRUBICINE [Suspect]
     Active Substance: EPIRUBICIN
     Indication: INVASIVE DUCTAL BREAST CARCINOMA
     Dosage: UNK
     Route: 042
     Dates: start: 201201, end: 201203
  4. DECAPEPTYL (TRIPTORELIN EMBONATE) [Suspect]
     Active Substance: TRIPTORELIN PAMOATE
     Indication: INVASIVE DUCTAL BREAST CARCINOMA
     Dosage: 1 DF 3 MONTH
     Route: 058
     Dates: start: 201802

REACTIONS (1)
  - Cardiac failure [Not Recovered/Not Resolved]

NARRATIVE: CASE EVENT DATE: 20210201
